FAERS Safety Report 9467798 (Version 1)
Quarter: 2013Q3

REPORT INFORMATION
  Report Type: Spontaneous
  Country: US (occurrence: None)
  Receive Date: 20130819
  Receipt Date: 20130819
  Transmission Date: 20140515
  Serious: No
  Sender: FDA-Public Use
  Company Number: None

PATIENT
  Sex: 0

DRUGS (2)
  1. FENTANYL PATCH [Suspect]
     Dosage: STRENGTH 12.5
  2. FENTANYL PATCH [Suspect]
     Dosage: STRENGTH 125

REACTIONS (16)
  - Medication error [None]
  - Overdose [None]
  - Stupor [None]
  - Drug dispensing error [None]
  - Incorrect dose administered [None]
  - Incontinence [None]
  - Depressed level of consciousness [None]
  - Depression [None]
  - Disorientation [None]
  - Decubitus ulcer [None]
  - General physical health deterioration [None]
  - Dysphagia [None]
  - Vomiting [None]
  - Fall [None]
  - Walking aid user [None]
  - Hypercalcaemia [None]
